FAERS Safety Report 16667855 (Version 1)
Quarter: 2019Q3

REPORT INFORMATION
  Report Type: Spontaneous
  Country: NL (occurrence: NL)
  Receive Date: 20190805
  Receipt Date: 20190805
  Transmission Date: 20191004
  Serious: Yes (Life-Threatening, Hospitalization, Other)
  Sender: FDA-Public Use
  Company Number: NL-SA-2019SA209548

PATIENT
  Age: 42 Year
  Sex: Female
  Weight: 60 kg

DRUGS (9)
  1. MORPHINE [Concomitant]
     Active Substance: MORPHINE
     Dosage: 10 MG
  2. NAPROXEN. [Concomitant]
     Active Substance: NAPROXEN
  3. CEFOTAXIME SODIUM [Suspect]
     Active Substance: CEFOTAXIME SODIUM
     Indication: PROPHYLAXIS
     Dosage: UNK UNK, QID
     Dates: start: 20170711, end: 20170713
  4. PROMETHAZINE [Concomitant]
     Active Substance: PROMETHAZINE HYDROCHLORIDE
     Dosage: UNK UNK, 1X
     Dates: start: 20170713
  5. ALFENTANIL. [Concomitant]
     Active Substance: ALFENTANIL
  6. DOXYCYCLINE. [Concomitant]
     Active Substance: DOXYCYCLINE
  7. PROPOFOL. [Concomitant]
     Active Substance: PROPOFOL
  8. METRONIDAZOLE. [Concomitant]
     Active Substance: METRONIDAZOLE
     Dosage: UNK
     Dates: start: 20170711
  9. ONDANSETRON [Concomitant]
     Active Substance: ONDANSETRON

REACTIONS (5)
  - Nausea [Recovered/Resolved]
  - Swollen tongue [Recovered/Resolved]
  - Abdominal distension [Recovered/Resolved]
  - Anaphylactic reaction [Recovered/Resolved]
  - Blood pressure decreased [Recovered/Resolved]

NARRATIVE: CASE EVENT DATE: 20170713
